FAERS Safety Report 5331897-9 (Version None)
Quarter: 2007Q2

REPORT INFORMATION
  Report Type: 
  Country: None (occurrence: None)
  Receive Date: 20070306
  Receipt Date: 20051117
  Transmission Date: 20071010
  Serious: Yes (Other)
  Sender: FDA-Public Use
  Company Number: A03200503809

PATIENT

DRUGS (2)
  1. PLAVIX [Suspect]
     Dosage: 75 MG QD ORAL
     Route: 048
  2. ASPIRIN [Suspect]
     Dosage: NI UNK ORAL
     Route: 048

REACTIONS (1)
  - GASTROINTESTINAL HAEMORRHAGE [None]
